FAERS Safety Report 6688509-1 (Version None)
Quarter: 2010Q2

REPORT INFORMATION
  Report Type: 
  Country: None (occurrence: None)
  Receive Date: 20100415
  Receipt Date: 20100330
  Transmission Date: 20101027
  Serious: Yes (Hospitalization)
  Sender: FDA-Public Use
  Company Number: B0646429A

PATIENT

DRUGS (3)
  1. PROPRANOLOL HCL [Suspect]
     Dosage: 4 GRAM(S) / ORAL
     Route: 048
  2. VERAPAMIL [Suspect]
     Dosage: 1.2 GRAM(S) / ORAL
     Route: 048
  3. BETAXOLOL [Suspect]
     Dosage: 6.8 GRAM(S) / ORAL
     Route: 048

REACTIONS (6)
  - BLOOD BICARBONATE INCREASED [None]
  - CARDIAC FAILURE [None]
  - CIRCULATORY COLLAPSE [None]
  - COMA SCALE ABNORMAL [None]
  - DRUG TOXICITY [None]
  - MULTIPLE DRUG OVERDOSE [None]
